FAERS Safety Report 8317534-X (Version None)
Quarter: 2012Q2

REPORT INFORMATION
  Report Type: 
  Country: None (occurrence: None)
  Receive Date: 20120427
  Receipt Date: 20120423
  Transmission Date: 20120825
  Serious: Yes (Death, Other)
  Sender: FDA-Public Use
  Company Number: JP-PFIZER INC-2012021080

PATIENT
  Age: 76 Year
  Sex: Male

DRUGS (3)
  1. LIDOCAINE [Suspect]
  2. ANTHROBIN P [Suspect]
  3. ZYVOX [Suspect]
     Dosage: 600 MG, 2X/DAY
     Dates: start: 20120118

REACTIONS (1)
  - PLATELET COUNT DECREASED [None]
